FAERS Safety Report 17519465 (Version 1)
Quarter: 2020Q1

REPORT INFORMATION
  Report Type: Spontaneous
  Country: US (occurrence: US)
  Receive Date: 20200228
  Receipt Date: 20200228
  Transmission Date: 20200409
  Serious: Yes (Hospitalization)
  Sender: FDA-Public Use
  Company Number: None

PATIENT
  Age: 55 Year
  Sex: Male
  Weight: 122.4 kg

DRUGS (12)
  1. HYDROCODONE-ACETAMINOPHEN [Concomitant]
     Active Substance: ACETAMINOPHEN\HYDROCODONE
  2. LUPRON [Concomitant]
     Active Substance: LEUPROLIDE ACETATE
  3. TRAMADOL. [Concomitant]
     Active Substance: TRAMADOL
  4. NAPROXEN SODIUM. [Concomitant]
     Active Substance: NAPROXEN SODIUM
  5. PREDNISONE. [Suspect]
     Active Substance: PREDNISONE
     Dates: end: 20200123
  6. ABIRATERONE ACETATE. [Suspect]
     Active Substance: ABIRATERONE ACETATE
     Dates: end: 20200123
  7. ACETAMINOPHEN. [Concomitant]
     Active Substance: ACETAMINOPHEN
  8. ATORVASTATIN [Concomitant]
     Active Substance: ATORVASTATIN
  9. DEXAMETHASONE. [Concomitant]
     Active Substance: DEXAMETHASONE
  10. PREDNISONE. [Concomitant]
     Active Substance: PREDNISONE
  11. JANUMET [Concomitant]
     Active Substance: METFORMIN HYDROCHLORIDE\SITAGLIPTIN PHOSPHATE
  12. CABAZITAXEL [Suspect]
     Active Substance: CABAZITAXEL
     Dates: end: 20200123

REACTIONS (1)
  - Pyrexia [None]

NARRATIVE: CASE EVENT DATE: 20200226
